FAERS Safety Report 4878599-0 (Version None)
Quarter: 2006Q1

REPORT INFORMATION
  Report Type: 
  Country: None (occurrence: None)
  Receive Date: 20060112
  Receipt Date: 20060105
  Transmission Date: 20060701
  Serious: Yes (Other)
  Sender: FDA-Public Use
  Company Number: AR-AVENTIS-200610266GDDC

PATIENT
  Age: 6 Year
  Sex: Female

DRUGS (1)
  1. METRONIDAZOLE [Suspect]
     Route: 048
     Dates: start: 20050801, end: 20050801

REACTIONS (3)
  - ABDOMINAL PAIN [None]
  - BLINDNESS TRANSIENT [None]
  - HEADACHE [None]
